FAERS Safety Report 24779817 (Version 1)
Quarter: 2024Q4

REPORT INFORMATION
  Report Type: Spontaneous
  Country: US (occurrence: US)
  Receive Date: 20241226
  Receipt Date: 20241226
  Transmission Date: 20250114
  Serious: No
  Sender: EMERGENT BIOSOLUTIONS
  Company Number: US-EMERGENT BIOSOLUTIONS INC,.-24000203

PATIENT
  Age: 19 Year
  Sex: Male

DRUGS (15)
  1. CNJ-016 [Suspect]
     Active Substance: HUMAN VACCINIA VIRUS IMMUNE GLOBULIN
     Indication: Encephalitis
     Dosage: 400000 UNIT, ONE DOSE
     Route: 042
     Dates: start: 20070907
  2. CNJ-016 [Suspect]
     Active Substance: HUMAN VACCINIA VIRUS IMMUNE GLOBULIN
     Indication: Encephalomyelitis
  3. TYPHOID VACCINE [Concomitant]
     Active Substance: TYPHOID VACCINE
     Indication: Immunisation
     Dosage: UNK
     Route: 065
     Dates: start: 200708
  4. ANTHRAX VACCINE ADSORBED NOS [Concomitant]
     Active Substance: BACILLUS ANTHRACIS STRAIN V770-NP1-R ANTIGEN
     Indication: Immunisation
     Dosage: UNK, 2 DOSES
     Route: 065
     Dates: start: 200708
  5. VANCOMYCIN [Concomitant]
     Active Substance: VANCOMYCIN
     Indication: Antibiotic therapy
     Dosage: UNK
     Route: 065
  6. CEFTRIAXONE [Concomitant]
     Active Substance: CEFTRIAXONE
     Indication: Antibiotic therapy
     Dosage: UNK
     Route: 065
  7. ACYCLOVIR [Concomitant]
     Active Substance: ACYCLOVIR
     Indication: Antiviral treatment
     Dosage: UNK
     Route: 065
  8. AMPICILLIN [Concomitant]
     Active Substance: AMPICILLIN
     Indication: Antibiotic therapy
     Dosage: UNK
     Route: 065
  9. DOXYCYCLINE [Concomitant]
     Active Substance: DOXYCYCLINE
     Indication: Antibiotic therapy
     Dosage: UNK
     Route: 065
  10. METHYLPREDNISOLONE [Concomitant]
     Active Substance: METHYLPREDNISOLONE
     Indication: Encephalitis
     Dosage: 500 MILLIGRAM, EVERY 12 HOURS, HIGH DOSE
     Route: 065
     Dates: start: 20070905
  11. METHYLPREDNISOLONE [Concomitant]
     Active Substance: METHYLPREDNISOLONE
     Indication: Encephalomyelitis
     Dosage: UNK, TAPERED OVER 8 DAYS
     Route: 065
     Dates: start: 200709
  12. HUMAN IMMUNOGLOBULIN G [Concomitant]
     Active Substance: HUMAN IMMUNOGLOBULIN G
     Indication: Encephalitis
     Dosage: 30 GRAM, QD
     Route: 042
     Dates: start: 20070906
  13. HUMAN IMMUNOGLOBULIN G [Concomitant]
     Active Substance: HUMAN IMMUNOGLOBULIN G
     Indication: Encephalomyelitis
  14. PREDNISONE [Concomitant]
     Active Substance: PREDNISONE
     Indication: Encephalitis
     Dosage: UNK
     Route: 048
     Dates: start: 200709
  15. PREDNISONE [Concomitant]
     Active Substance: PREDNISONE
     Indication: Encephalomyelitis

REACTIONS (2)
  - Therapeutic response unexpected [Recovered/Resolved]
  - Off label use [Recovered/Resolved]
